FAERS Safety Report 22089855 (Version 1)
Quarter: 2023Q1

REPORT INFORMATION
  Report Type: Spontaneous
  Country: PT (occurrence: PT)
  Receive Date: 20230313
  Receipt Date: 20230313
  Transmission Date: 20230418
  Serious: Yes (Other)
  Sender: FDA-Public Use
  Company Number: None

PATIENT
  Age: 63 Year
  Sex: Female

DRUGS (1)
  1. OXALIPLATIN [Suspect]
     Active Substance: OXALIPLATIN
     Indication: Product used for unknown indication

REACTIONS (5)
  - Acute respiratory failure [None]
  - Cardiac failure [None]
  - Hyperhidrosis [None]
  - Nausea [None]
  - Erythema [None]

NARRATIVE: CASE EVENT DATE: 20220608
